FAERS Safety Report 9603515 (Version 3)
Quarter: 2013Q4

REPORT INFORMATION
  Report Type: Spontaneous
  Country: US (occurrence: US)
  Receive Date: 20131007
  Receipt Date: 20131113
  Transmission Date: 20140711
  Serious: No
  Sender: FDA-Public Use
  Company Number: US-009507513-1309USA012839

PATIENT
  Age: 40 Year
  Sex: Female

DRUGS (1)
  1. ASMANEX TWISTHALER [Suspect]
     Indication: ASTHMA
     Dosage: 440 MICROGRAM, QPM
     Route: 055

REACTIONS (2)
  - Pain in extremity [Recovered/Resolved]
  - Discomfort [Recovered/Resolved]
